FAERS Safety Report 14080517 (Version 1)
Quarter: 2017Q4

REPORT INFORMATION
  Report Type: Spontaneous
  Country: US (occurrence: US)
  Receive Date: 20171012
  Receipt Date: 20171012
  Transmission Date: 20180321
  Serious: No
  Sender: FDA-Public Use
  Company Number: US-MYLANLABS-2017M1035298

PATIENT
  Age: 53 Year
  Sex: Male

DRUGS (1)
  1. LIDOCAINE PATCH [Suspect]
     Active Substance: LIDOCAINE
     Indication: PAIN
     Dosage: 3 DF, QD, 12 HRS ON, 12 HRS OFF
     Route: 003
     Dates: start: 20170607

REACTIONS (4)
  - Product use in unapproved indication [Not Recovered/Not Resolved]
  - Product quality issue [Unknown]
  - Application site discomfort [Unknown]
  - Product adhesion issue [Unknown]

NARRATIVE: CASE EVENT DATE: 20170607
